FAERS Safety Report 20566539 (Version 2)
Quarter: 2022Q1

REPORT INFORMATION
  Report Type: Spontaneous
  Country: US (occurrence: US)
  Receive Date: 20220308
  Receipt Date: 20220315
  Transmission Date: 20220423
  Serious: No
  Sender: FDA-Public Use
  Company Number: US-GW PHARMA-202203USGW01104

PATIENT
  Sex: Female

DRUGS (8)
  1. EPIDIOLEX [Interacting]
     Active Substance: CANNABIDIOL
     Indication: Tuberous sclerosis complex
     Dosage: 700 MILLIGRAM, BID, DOSE DECREASED IN OCT 2021
     Route: 048
     Dates: end: 202111
  2. EPIDIOLEX [Interacting]
     Active Substance: CANNABIDIOL
     Indication: Partial seizures
     Dosage: 200 MILLIGRAM, BID
     Route: 048
     Dates: start: 202111
  3. EPIDIOLEX [Interacting]
     Active Substance: CANNABIDIOL
     Indication: Epilepsy
     Dosage: 500 MILLIGRAM, BID
     Route: 048
  4. EPIDIOLEX [Interacting]
     Active Substance: CANNABIDIOL
     Indication: Simple partial seizures
     Dosage: ADDITIONAL BATCH ADDED
     Route: 048
  5. ONFI [Interacting]
     Active Substance: CLOBAZAM
     Indication: Product used for unknown indication
     Dosage: UNK
     Route: 065
  6. BRIVIACT [Concomitant]
     Active Substance: BRIVARACETAM
     Indication: Product used for unknown indication
     Dosage: UNK
     Route: 065
  7. CLONAZEPAM [Concomitant]
     Active Substance: CLONAZEPAM
     Indication: Product used for unknown indication
     Dosage: UNK
     Route: 065
  8. ZONEGRAN [Concomitant]
     Active Substance: ZONISAMIDE
     Indication: Product used for unknown indication
     Dosage: UNK
     Route: 065

REACTIONS (3)
  - Drug interaction [Unknown]
  - Seizure [Recovered/Resolved]
  - Somnolence [Unknown]

NARRATIVE: CASE EVENT DATE: 20210101
